FAERS Safety Report 10015749 (Version 1)
Quarter: 2014Q1

REPORT INFORMATION
  Report Type: Spontaneous
  Country: DE (occurrence: DE)
  Receive Date: 20140317
  Receipt Date: 20140317
  Transmission Date: 20141002
  Serious: Yes (Other)
  Sender: FDA-Public Use
  Company Number: DE-MYLANLABS-2014S1005260

PATIENT
  Age: 25 Year
  Sex: Male
  Weight: 70 kg

DRUGS (2)
  1. MORPHINE [Suspect]
     Indication: VOMITING
     Route: 050
  2. MORPHINE [Suspect]
     Indication: OFF LABEL USE
     Route: 050

REACTIONS (4)
  - Drug withdrawal syndrome [Recovered/Resolved]
  - Restless legs syndrome [Unknown]
  - Pain in extremity [Unknown]
  - Sluggishness [Unknown]
